FAERS Safety Report 7677596-X (Version None)
Quarter: 2011Q3

REPORT INFORMATION
  Report Type: 
  Country: None (occurrence: None)
  Receive Date: 20110811
  Receipt Date: 20110811
  Transmission Date: 20111222
  Serious: No
  Sender: FDA-Public Use
  Company Number: None

PATIENT
  Age: 53 Year
  Sex: Male

DRUGS (2)
  1. METHOTREXATE [Suspect]
     Indication: RHEUMATOID ARTHRITIS
     Dosage: NOT PROVIDED
  2. ACTEMRA [Concomitant]
     Dosage: NOT PROVIDED

REACTIONS (1)
  - ABDOMINAL DISCOMFORT [None]
